FAERS Safety Report 4334339-5 (Version None)
Quarter: 2004Q2

REPORT INFORMATION
  Report Type: 
  Country: None (occurrence: None)
  Receive Date: 20040405
  Receipt Date: 20040318
  Transmission Date: 20050107
  Serious: No
  Sender: FDA-Public Use
  Company Number: A04200400263

PATIENT
  Age: 54 Year
  Sex: Male

DRUGS (1)
  1. ARIXTRA [Suspect]
     Indication: THROMBOSIS PROPHYLAXIS
     Dosage: 2.5 MG OD, ORAL
     Route: 048

REACTIONS (1)
  - THROMBOSIS [None]
